FAERS Safety Report 17935125 (Version 3)
Quarter: 2022Q1

REPORT INFORMATION
  Report Type: Spontaneous
  Country: US (occurrence: US)
  Receive Date: 20200624
  Receipt Date: 20220222
  Transmission Date: 20220423
  Serious: No
  Sender: FDA-Public Use
  Company Number: US-PFIZER INC-2020243072

PATIENT
  Age: 85 Year
  Sex: Female
  Weight: 68.95 kg

DRUGS (2)
  1. IBRANCE [Suspect]
     Active Substance: PALBOCICLIB
     Indication: Breast cancer stage IV
     Dosage: 100 MG, CYCLIC (DAILY FOR 21 DAYS ON AND 7 DAYS OFF)
     Route: 048
     Dates: start: 2020
  2. IBRANCE [Suspect]
     Active Substance: PALBOCICLIB
     Indication: Breast cancer stage IV
     Dosage: UNK
     Dates: start: 2020

REACTIONS (4)
  - Paraesthesia [Not Recovered/Not Resolved]
  - Hypoaesthesia [Not Recovered/Not Resolved]
  - Dysgraphia [Unknown]
  - Rash [Unknown]

NARRATIVE: CASE EVENT DATE: 20200401
